FAERS Safety Report 5514583-1 (Version None)
Quarter: 2007Q4

REPORT INFORMATION
  Report Type: 
  Country: None (occurrence: None)
  Receive Date: 20071113
  Receipt Date: 20071109
  Transmission Date: 20080405
  Serious: Yes (Life-Threatening)
  Sender: FDA-Public Use
  Company Number: B0494689A

PATIENT
  Age: 20 Year
  Sex: Female

DRUGS (2)
  1. PAXIL [Suspect]
     Indication: DEPRESSION
     Route: 048
  2. SULPIRIDE [Concomitant]

REACTIONS (2)
  - HIP FRACTURE [None]
  - SUICIDE ATTEMPT [None]
